FAERS Safety Report 11391429 (Version 5)
Quarter: 2019Q3

REPORT INFORMATION
  Report Type: Report from Study
  Country: FR (occurrence: FR)
  Receive Date: 20150818
  Receipt Date: 20190713
  Transmission Date: 20191004
  Serious: Yes (Other)
  Sender: FDA-Public Use
  Company Number: FR-ROCHE-1241782

PATIENT
  Sex: Female

DRUGS (2)
  1. TRASTUZUMAB. [Suspect]
     Active Substance: TRASTUZUMAB
     Dosage: OVER 30 TO 90 MINUTES MAINTAINANCE DOSE
     Route: 042
  2. TRASTUZUMAB. [Suspect]
     Active Substance: TRASTUZUMAB
     Indication: HER-2 POSITIVE BREAST CANCER
     Dosage: OVER 30 TO 90 MINUTES LOADING DOSE
     Route: 042

REACTIONS (5)
  - Pericarditis infective [Unknown]
  - Ejection fraction decreased [Unknown]
  - Atrioventricular block [Unknown]
  - Atrial fibrillation [Unknown]
  - Cardiac failure congestive [Unknown]
